FAERS Safety Report 7116853-2 (Version None)
Quarter: 2010Q4

REPORT INFORMATION
  Report Type: 
  Country: None (occurrence: None)
  Receive Date: 20101122
  Receipt Date: 20101029
  Transmission Date: 20110411
  Serious: Yes (Hospitalization)
  Sender: FDA-Public Use
  Company Number: IT-PFIZER INC-2010153723

PATIENT
  Age: 86 Year
  Sex: Female

DRUGS (4)
  1. CORDARONE [Suspect]
     Dosage: 200 MG, DAILY
     Route: 048
     Dates: start: 20000101, end: 20101013
  2. LASITONE [Concomitant]
  3. ASPIRIN [Concomitant]
  4. STUGERON [Concomitant]

REACTIONS (2)
  - ARRHYTHMIA SUPRAVENTRICULAR [None]
  - HYPOTHYROIDISM [None]
